FAERS Safety Report 16395497 (Version 2)
Quarter: 2019Q2

REPORT INFORMATION
  Report Type: Spontaneous
  Country: FR (occurrence: FR)
  Receive Date: 20190605
  Receipt Date: 20190607
  Transmission Date: 20190711
  Serious: Yes (Death, Other)
  Sender: FDA-Public Use
  Company Number: FR-BAYER-2019-103476

PATIENT
  Age: 42 Year
  Sex: Male

DRUGS (3)
  1. MORPHINE [Concomitant]
     Active Substance: MORPHINE
     Dosage: UNK
  2. NEXAVAR [Suspect]
     Active Substance: SORAFENIB
     Dosage: 800 MG, QD
     Dates: start: 201805, end: 2018
  3. NEXAVAR [Suspect]
     Active Substance: SORAFENIB
     Dosage: 400 MG, QD
     Dates: start: 2018

REACTIONS (15)
  - Malignant neoplasm progression [None]
  - Hepatic cirrhosis [None]
  - Jaundice [None]
  - Hepatic failure [Fatal]
  - Hepatomegaly [None]
  - Abdominal mass [None]
  - Abdominal pain [None]
  - General physical health deterioration [None]
  - Asthenia [None]
  - Abdominal pain [None]
  - Hepatic necrosis [None]
  - Ascites [None]
  - Ascites [None]
  - Jaundice [None]
  - Dermal cyst [None]

NARRATIVE: CASE EVENT DATE: 201809
